FAERS Safety Report 16319652 (Version 1)
Quarter: 2019Q2

REPORT INFORMATION
  Report Type: Spontaneous
  Country: US (occurrence: US)
  Receive Date: 20190516
  Receipt Date: 20190516
  Transmission Date: 20190711
  Serious: Yes (Hospitalization)
  Sender: FDA-Public Use
  Company Number: US-AKORN PHARMACEUTICALS-2019AKN00944

PATIENT
  Age: 14 Year
  Sex: Male
  Weight: 96.6 kg

DRUGS (2)
  1. MYORISAN [Suspect]
     Active Substance: ISOTRETINOIN
     Dosage: 40 MG, 2X/DAY
     Route: 048
     Dates: start: 20190103, end: 201903
  2. MYORISAN [Suspect]
     Active Substance: ISOTRETINOIN
     Indication: ACNE
     Dosage: 40 MG, 1X/DAY
     Route: 048
     Dates: start: 20181128, end: 20190102

REACTIONS (3)
  - Infected cyst [Unknown]
  - Off label use [Recovered/Resolved]
  - Pilonidal cyst [Unknown]

NARRATIVE: CASE EVENT DATE: 20181128
